FAERS Safety Report 17071941 (Version 1)
Quarter: 2019Q4

REPORT INFORMATION
  Report Type: Spontaneous
  Country: NO (occurrence: NO)
  Receive Date: 20191125
  Receipt Date: 20191125
  Transmission Date: 20200122
  Serious: Yes (Other)
  Sender: FDA-Public Use
  Company Number: NO-SA-2019SA325476

PATIENT
  Age: 28 Year
  Sex: Female

DRUGS (2)
  1. LEMTRADA [Suspect]
     Active Substance: ALEMTUZUMAB
     Dosage: UNK
     Route: 042
     Dates: start: 2018, end: 2018
  2. LEMTRADA [Suspect]
     Active Substance: ALEMTUZUMAB
     Indication: MULTIPLE SCLEROSIS
     Dosage: SECOND TREATMENT CYCLE OF MOTHER. FIRST CYCLE A YEAR EARLIER (2018).
     Route: 042
     Dates: start: 20190603, end: 20190607

REACTIONS (1)
  - Abortion spontaneous complete [Recovered/Resolved]

NARRATIVE: CASE EVENT DATE: 20191022
